FAERS Safety Report 4898764-6 (Version None)
Quarter: 2006Q1

REPORT INFORMATION
  Report Type: 
  Country: None (occurrence: None)
  Receive Date: 20060127
  Receipt Date: 20060119
  Transmission Date: 20060701
  Serious: Yes (Other)
  Sender: FDA-Public Use
  Company Number: HQWYE448120JAN06

PATIENT
  Age: 19 Year
  Sex: Female
  Weight: 73.55 kg

DRUGS (4)
  1. EFFEXOR XR [Suspect]
     Indication: DEPRESSION
     Dosage: 37.5 MG, 1X PER 1 DAY, ORAL
     Route: 048
     Dates: start: 20051227, end: 20051230
  2. REGLAN [Suspect]
     Indication: NAUSEA
  3. LEVONORGESTREL W/ ETHINYLESTRADIOL (ETHINYLESTRADIOL/ LEVONORGESTREL) [Concomitant]
  4. ANAPROX [Concomitant]

REACTIONS (8)
  - DRUG HYPERSENSITIVITY [None]
  - DYSTONIA [None]
  - JOINT HYPEREXTENSION [None]
  - MUSCLE RIGIDITY [None]
  - NAUSEA [None]
  - PALLOR [None]
  - PUPIL FIXED [None]
  - TRISMUS [None]
